FAERS Safety Report 9537843 (Version 1)
Quarter: 2013Q3

REPORT INFORMATION
  Report Type: Report from Study
  Country: DE (occurrence: DE)
  Receive Date: 20130919
  Receipt Date: 20130919
  Transmission Date: 20140515
  Serious: No
  Sender: FDA-Public Use
  Company Number: PHHY2013DE103044

PATIENT
  Sex: Male

DRUGS (3)
  1. AMN107 [Suspect]
     Indication: CHRONIC MYELOID LEUKAEMIA
     Dosage: 600 MG/DAY
     Route: 048
     Dates: start: 20130308
  2. VESIKUR [Concomitant]
     Dosage: UNK
     Dates: end: 20130430
  3. BISOPROLOL [Concomitant]
     Dosage: 2.5 MG, UNK

REACTIONS (1)
  - Paraesthesia [Recovered/Resolved]
